FAERS Safety Report 25480093 (Version 1)
Quarter: 2025Q2

REPORT INFORMATION
  Report Type: Spontaneous
  Country: FR (occurrence: FR)
  Receive Date: 20250625
  Receipt Date: 20250625
  Transmission Date: 20250716
  Serious: Yes (Congenital Anomaly)
  Sender: MYLAN
  Company Number: None

PATIENT
  Sex: Male

DRUGS (2)
  1. METHOTREXATE [Suspect]
     Active Substance: METHOTREXATE
     Indication: Ectopic pregnancy
     Dates: start: 20240525, end: 20240525
  2. METHOTREXATE [Suspect]
     Active Substance: METHOTREXATE
     Dates: start: 20240529, end: 20240529

REACTIONS (9)
  - Brachycephaly [Not Recovered/Not Resolved]
  - Exophthalmos [Not Recovered/Not Resolved]
  - Hypertelorism [Not Recovered/Not Resolved]
  - Syndactyly [Not Recovered/Not Resolved]
  - Inguinal hernia [Not Recovered/Not Resolved]
  - Cryptorchism [Not Recovered/Not Resolved]
  - Low set ears [Not Recovered/Not Resolved]
  - Dysmorphism [Not Recovered/Not Resolved]
  - Foetal exposure during pregnancy [Unknown]

NARRATIVE: CASE EVENT DATE: 20240525
